FAERS Safety Report 9173858 (Version 2)
Quarter: 2013Q1

REPORT INFORMATION
  Report Type: Spontaneous
  Country: US (occurrence: None)
  Receive Date: 20130318
  Receipt Date: 20130322
  Transmission Date: 20140127
  Serious: Yes (Other)
  Sender: FDA-Public Use
  Company Number: None

PATIENT
  Age: 57 Year
  Sex: Female
  Weight: 60.33 kg

DRUGS (12)
  1. KENALOG-40 INJ [Suspect]
     Indication: BACK PAIN
     Dosage: 80 MG EPIDURAL
     Route: 008
  2. KENALOG-40 INJ [Suspect]
     Indication: INTERVERTEBRAL DISC DEGENERATION
     Dosage: 80 MG EPIDURAL
     Route: 008
  3. PRILOSEC [Concomitant]
  4. MULTIVITAMIN [Concomitant]
  5. VIT D [Concomitant]
  6. FISH OIL [Concomitant]
  7. CA/VIT D [Concomitant]
  8. FLAX SEED [Concomitant]
  9. CHLORZOXAZONE [Concomitant]
  10. METHACARBAMOL [Concomitant]
  11. IBUPROFEN [Concomitant]
  12. ACETAMINOPHEN [Concomitant]

REACTIONS (2)
  - Headache [None]
  - Erythema [None]
